FAERS Safety Report 8009840-3 (Version None)
Quarter: 2011Q4

REPORT INFORMATION
  Report Type: 
  Country: None (occurrence: None)
  Receive Date: 20111228
  Receipt Date: 20111225
  Transmission Date: 20120403
  Serious: No
  Sender: FDA-Public Use
  Company Number: US-BAYER-2011-123471

PATIENT
  Sex: Female

DRUGS (1)
  1. MIRENA [Suspect]
     Indication: CONTRACEPTION
     Dosage: 20 MCG/24HR, CONT
     Route: 015
     Dates: start: 20111101

REACTIONS (6)
  - ABDOMINAL PAIN [None]
  - HEADACHE [None]
  - MENSTRUATION DELAYED [None]
  - INCREASED APPETITE [None]
  - PELVIC PAIN [None]
  - NAUSEA [None]
